FAERS Safety Report 17201887 (Version 1)
Quarter: 2019Q4

REPORT INFORMATION
  Report Type: Spontaneous
  Country: GB (occurrence: GB)
  Receive Date: 20191226
  Receipt Date: 20191226
  Transmission Date: 20200122
  Serious: Yes (Other)
  Sender: FDA-Public Use
  Company Number: GB-MYLANLABS-2019M1120740

PATIENT
  Sex: Male
  Weight: 60 kg

DRUGS (12)
  1. MIRTAZAPINE. [Concomitant]
     Active Substance: MIRTAZAPINE
     Dosage: 45 MILLIGRAM, PM
     Route: 048
  2. ASPRIN [Concomitant]
     Active Substance: ASPIRIN
     Dosage: 75 MILLIGRAM, AM
     Route: 048
  3. METFORMIN [Concomitant]
     Active Substance: METFORMIN HYDROCHLORIDE
     Dosage: 1 GRAM, AM
     Route: 048
  4. RAMIPRIL. [Concomitant]
     Active Substance: RAMIPRIL
     Dosage: 1.25 MILLIGRAM, QD
     Route: 048
  5. SODIUM VALPROATE [Concomitant]
     Active Substance: VALPROATE SODIUM
     Dosage: 400 MILLIGRAM, PM
     Route: 048
  6. HYOSCINE HYDROBROMIDE [Concomitant]
     Active Substance: SCOPOLAMINE HYDROBROMIDE
     Dosage: 300 MICROGRAM, AM
     Route: 048
  7. LANSOPRAZOLE. [Concomitant]
     Active Substance: LANSOPRAZOLE
     Dosage: 30 MILLIGRAM, QD
     Route: 048
  8. SIMVASTATIN. [Concomitant]
     Active Substance: SIMVASTATIN
     Dosage: 40 MILLIGRAM, QD
     Route: 048
  9. SODIUM VALPROATE [Concomitant]
     Active Substance: VALPROATE SODIUM
     Dosage: 200 MILLIGRAM, AM
     Route: 048
  10. CLOZARIL [Suspect]
     Active Substance: CLOZAPINE
     Indication: SCHIZOPHRENIA
     Dosage: UNK
     Route: 048
     Dates: start: 20010925
  11. METFORMIN [Concomitant]
     Active Substance: METFORMIN HYDROCHLORIDE
     Dosage: 1 GRAM, PM
     Route: 048
  12. HYOSCINE HYDROBROMIDE [Concomitant]
     Active Substance: SCOPOLAMINE HYDROBROMIDE
     Dosage: 300 MICROGRAM, PM
     Route: 048

REACTIONS (4)
  - Fatigue [Recovering/Resolving]
  - Influenza like illness [Unknown]
  - White blood cell count increased [Unknown]
  - Haemoglobin decreased [Unknown]

NARRATIVE: CASE EVENT DATE: 2019
